FAERS Safety Report 25144645 (Version 6)
Quarter: 2025Q3

REPORT INFORMATION
  Report Type: Spontaneous
  Country: US (occurrence: US)
  Receive Date: 20250401
  Receipt Date: 20250812
  Transmission Date: 20251021
  Serious: Yes (Hospitalization, Other)
  Sender: ACCORD
  Company Number: US-Accord-475125

PATIENT
  Age: 28 Year
  Sex: Female
  Weight: 50.0 kg

DRUGS (11)
  1. IRINOTECAN [Suspect]
     Active Substance: IRINOTECAN
     Indication: Ewing^s sarcoma
     Route: 042
     Dates: start: 20250303, end: 20250307
  2. TEMOZOLOMIDE [Suspect]
     Active Substance: TEMOZOLOMIDE
     Indication: Ewing^s sarcoma
     Route: 048
     Dates: start: 20250303, end: 20250307
  3. FENTANYL [Concomitant]
     Active Substance: FENTANYL
     Dates: start: 20240224, end: 20250319
  4. ZOFRAN [Concomitant]
     Active Substance: ONDANSETRON HYDROCHLORIDE
     Dates: start: 20240803, end: 20250414
  5. MIRALAX [Concomitant]
     Active Substance: POLYETHYLENE GLYCOL 3350
     Dates: start: 20241210
  6. SENOKOT [Concomitant]
     Active Substance: SENNOSIDES
     Dates: start: 20241210
  7. ASPIRIN [Concomitant]
     Active Substance: ASPIRIN
     Dates: start: 20241210
  8. PROCHLORPERAZINE MALEATE [Concomitant]
     Active Substance: PROCHLORPERAZINE MALEATE
     Dates: start: 20250114
  9. DILAUDID [Concomitant]
     Active Substance: HYDROMORPHONE HYDROCHLORIDE
     Dates: start: 20250225, end: 20250422
  10. REGLAN [Concomitant]
     Active Substance: METOCLOPRAMIDE HYDROCHLORIDE
     Dates: start: 20250305, end: 20250311
  11. NAC [Concomitant]
     Dates: start: 20250305, end: 20250319

REACTIONS (5)
  - Nausea [Recovered/Resolved]
  - Vomiting [Recovered/Resolved]
  - Clostridium difficile infection [Recovered/Resolved]
  - Sepsis [Unknown]
  - Abdominal pain [Recovered/Resolved]

NARRATIVE: CASE EVENT DATE: 20250306
